FAERS Safety Report 9226697 (Version 1)
Quarter: 2013Q2

REPORT INFORMATION
  Report Type: Spontaneous
  Country: US (occurrence: US)
  Receive Date: 20130412
  Receipt Date: 20130412
  Transmission Date: 20140414
  Serious: No
  Sender: FDA-Public Use
  Company Number: US-PFIZER INC-2013111976

PATIENT
  Age: 69 Year
  Sex: Female
  Weight: 53.52 kg

DRUGS (2)
  1. LEVOXYL [Suspect]
     Indication: THYROID CANCER
     Dosage: 100UG ONCE A DAY FOR THE FIRST DAY AND 88UG FOR THE OTHER SIX DAYS OF THE WEEK
     Route: 048
  2. ARMOUR THYROID [Suspect]
     Indication: THYROID CANCER
     Dosage: UNK

REACTIONS (2)
  - Asthenia [Unknown]
  - Presyncope [Unknown]
